FAERS Safety Report 6301970-7 (Version None)
Quarter: 2009Q3

REPORT INFORMATION
  Report Type: 
  Country: None (occurrence: None)
  Receive Date: 20090807
  Receipt Date: 20090805
  Transmission Date: 20100115
  Serious: Yes (Death, Hospitalization)
  Sender: FDA-Public Use
  Company Number: PHHY2009BR32886

PATIENT
  Sex: Female

DRUGS (5)
  1. DIOVAN HCT [Suspect]
     Indication: HYPERTENSION
     Dosage: 1 TABLET (160/25 MG) IN THE MORNING
     Route: 048
     Dates: start: 20090401
  2. PAMELOR [Concomitant]
     Indication: DEPRESSION
     Dosage: 2 TABLETS DAILY
     Route: 048
  3. FRISIUM [Concomitant]
     Indication: DEPRESSION
     Dosage: 3/4 TABLET (20 MG) DAILY
     Route: 048
  4. VENLAFAXINE HYDROCHLORIDE [Concomitant]
     Indication: DEPRESSION
     Dosage: 2 TABLETS (75 MG) DAILY
     Route: 048
  5. SEROQUEL [Concomitant]
     Indication: DEPRESSION
     Dosage: 1 TABLET (25 MG) DAILY
     Route: 048

REACTIONS (3)
  - DEATH [None]
  - DEPRESSION [None]
  - DIVERTICULITIS [None]
